FAERS Safety Report 9494563 (Version 2)
Quarter: 2013Q3

REPORT INFORMATION
  Report Type: Report from Study
  Country: KR (occurrence: KR)
  Receive Date: 20130903
  Receipt Date: 20130904
  Transmission Date: 20140515
  Serious: Yes (Hospitalization)
  Sender: FDA-Public Use
  Company Number: PHHY2013KR095125

PATIENT
  Age: 52 Year
  Sex: Female

DRUGS (1)
  1. INDACATEROL [Suspect]
     Indication: CHRONIC OBSTRUCTIVE PULMONARY DISEASE
     Dosage: 300 UG, UNK
     Dates: start: 20130125

REACTIONS (3)
  - Bronchiectasis [Recovered/Resolved]
  - Pneumonia [Recovered/Resolved]
  - Flank pain [Recovered/Resolved]
